FAERS Safety Report 12169465 (Version 3)
Quarter: 2016Q2

REPORT INFORMATION
  Report Type: Spontaneous
  Country: US (occurrence: US)
  Receive Date: 20160310
  Receipt Date: 20160426
  Transmission Date: 20160815
  Serious: Yes (Other)
  Sender: FDA-Public Use
  Company Number: US-PFIZER INC-2016149999

PATIENT
  Age: 33 Year
  Sex: Female
  Weight: 77 kg

DRUGS (4)
  1. LYRICA [Suspect]
     Active Substance: PREGABALIN
     Dosage: 75 MG,1X/DAY [HS]
     Route: 048
     Dates: start: 20160204, end: 20160205
  2. CLARITIN [Concomitant]
     Active Substance: LORATADINE
     Indication: HYPERSENSITIVITY
     Dosage: 10 MG, 1X/DAY
  3. MONTELUKAST [Concomitant]
     Active Substance: MONTELUKAST SODIUM
     Indication: ASTHMA
     Dosage: 1 DF, DAILY
  4. LYRICA [Suspect]
     Active Substance: PREGABALIN
     Indication: NEURALGIA
     Dosage: 75 MG, 1X/DAY
     Route: 048
     Dates: start: 20160204, end: 20160214

REACTIONS (7)
  - Hallucination [Recovered/Resolved]
  - Self-injurious ideation [Recovered/Resolved]
  - Thought blocking [Unknown]
  - Memory impairment [Recovered/Resolved]
  - Thinking abnormal [Unknown]
  - Chest pain [Recovered/Resolved]
  - Loss of consciousness [Recovered/Resolved]

NARRATIVE: CASE EVENT DATE: 20160205
